FAERS Safety Report 5707023-0 (Version None)
Quarter: 2008Q2

REPORT INFORMATION
  Report Type: 
  Country: None (occurrence: None)
  Receive Date: 20080416
  Receipt Date: 20080409
  Transmission Date: 20081010
  Serious: Yes (Other)
  Sender: FDA-Public Use
  Company Number: A0721886A

PATIENT
  Age: 52 Year
  Sex: Male

DRUGS (5)
  1. IMITREX [Suspect]
     Indication: MIGRAINE
     Dosage: 6MG AS REQUIRED
     Route: 058
     Dates: start: 20030101
  2. LANTUS [Concomitant]
  3. NOVOLOG [Concomitant]
  4. LEVOTHYROXINE SODIUM [Concomitant]
  5. LISINOPRIL [Concomitant]

REACTIONS (5)
  - BLINDNESS [None]
  - CHEST DISCOMFORT [None]
  - INJECTION SITE IRRITATION [None]
  - PAIN IN EXTREMITY [None]
  - VISUAL FIELD DEFECT [None]
